FAERS Safety Report 15732164 (Version 1)
Quarter: 2018Q4

REPORT INFORMATION
  Report Type: Spontaneous
  Country: US (occurrence: US)
  Receive Date: 20181217
  Receipt Date: 20181217
  Transmission Date: 20190205
  Serious: No
  Sender: FDA-Public Use
  Company Number: US-NOVOPROD-627937

PATIENT
  Sex: Female

DRUGS (2)
  1. FIASP 3ML PDS290 [Suspect]
     Active Substance: INSULIN ASPART
     Indication: PRODUCT USED FOR UNKNOWN INDICATION
     Dosage: UNK
     Route: 058
  2. OZEMPIC [Suspect]
     Active Substance: SEMAGLUTIDE
     Indication: PRODUCT USED FOR UNKNOWN INDICATION
     Dosage: UNK
     Route: 058

REACTIONS (6)
  - Gastrooesophageal reflux disease [Unknown]
  - Blood glucose increased [Unknown]
  - Nausea [Unknown]
  - Blood glucose decreased [Unknown]
  - Menstruation irregular [Unknown]
  - Insulin resistance [Unknown]
